FAERS Safety Report 9693740 (Version 1)
Quarter: 2013Q4

REPORT INFORMATION
  Report Type: Report from Study
  Country: IT (occurrence: IT)
  Receive Date: 20131118
  Receipt Date: 20131118
  Transmission Date: 20140711
  Serious: Yes (Death, Life-Threatening, Other)
  Sender: FDA-Public Use
  Company Number: IT-CELGENEUS-083-50794-13110739

PATIENT
  Sex: 0

DRUGS (1)
  1. VIDAZA [Suspect]
     Indication: MYELODYSPLASTIC SYNDROME
     Route: 058

REACTIONS (40)
  - Death [Fatal]
  - Complications of transplant surgery [Fatal]
  - Bronchopulmonary aspergillosis [Fatal]
  - Thrombocytopenic purpura [Fatal]
  - Disease progression [Fatal]
  - Sepsis [Unknown]
  - Thrombocytopenia [Unknown]
  - Neutropenia [Unknown]
  - White blood cell count decreased [Unknown]
  - Pneumonia [Unknown]
  - Gastroenteritis [Unknown]
  - Bronchopulmonary aspergillosis [Unknown]
  - Blood disorder [Unknown]
  - Splenic infarction [Unknown]
  - Sepsis [Unknown]
  - Lower respiratory tract infection [Unknown]
  - Interstitial lung disease [Unknown]
  - Anaemia [Unknown]
  - Urinary tract infection [Unknown]
  - Pyrexia [Unknown]
  - Herpes zoster [Unknown]
  - Toxoplasmosis [Unknown]
  - Infection [Unknown]
  - Deafness [Unknown]
  - Bronchitis [Unknown]
  - Lung disorder [Unknown]
  - Pharyngeal disorder [Unknown]
  - Gastrointestinal disorder [Unknown]
  - Arthropathy [Unknown]
  - Bursitis [Unknown]
  - Musculoskeletal disorder [Unknown]
  - Swelling [Unknown]
  - Nasopharyngitis [Unknown]
  - Anaemia [Unknown]
  - Urticaria [Unknown]
  - Constipation [Unknown]
  - Erythema [Unknown]
  - Fatigue [Unknown]
  - Diarrhoea [Unknown]
  - Nausea [Unknown]
